FAERS Safety Report 10569834 (Version 1)
Quarter: 2014Q4

REPORT INFORMATION
  Report Type: Spontaneous
  Country: FR (occurrence: FR)
  Receive Date: 20141107
  Receipt Date: 20141107
  Transmission Date: 20150529
  Serious: Yes (Hospitalization)
  Sender: FDA-Public Use
  Company Number: FR-BRISTOL-MYERS SQUIBB COMPANY-21578422

PATIENT
  Age: 68 Year
  Sex: Male

DRUGS (10)
  1. YERVOY [Suspect]
     Active Substance: IPILIMUMAB
     Indication: MALIGNANT MELANOMA
     Dosage: 2ND INFUSION ON 15-SEP-2014. 5 MG/ML
     Dates: start: 201403
  2. FLECAINE [Concomitant]
     Active Substance: FLECAINIDE
  3. BISOPROLOL FUMARATE. [Concomitant]
     Active Substance: BISOPROLOL FUMARATE
  4. COAPROVEL [Concomitant]
     Active Substance: HYDROCHLOROTHIAZIDE\IRBESARTAN
  5. LERCAN [Concomitant]
     Active Substance: LERCANIDIPINE
  6. GLICLAZIDE [Concomitant]
     Active Substance: GLICLAZIDE
  7. PREVISCAN [Concomitant]
     Active Substance: FLUINDIONE
  8. LEVOTHYROX [Concomitant]
     Active Substance: LEVOTHYROXINE
  9. ZYLORIC [Concomitant]
     Active Substance: ALLOPURINOL
  10. HYPERIUM [Concomitant]
     Active Substance: RILMENIDINE PHOSPHATE

REACTIONS (4)
  - Pruritus [Recovered/Resolved]
  - Diarrhoea [Recovered/Resolved]
  - Rash maculo-papular [Recovered/Resolved]
  - Ageusia [Recovered/Resolved]

NARRATIVE: CASE EVENT DATE: 201409
